FAERS Safety Report 23971972 (Version 1)
Quarter: 2024Q2

REPORT INFORMATION
  Report Type: Spontaneous
  Country: US (occurrence: None)
  Receive Date: 20240612
  Receipt Date: 20240612
  Transmission Date: 20240716
  Serious: No
  Sender: FDA-Public Use
  Company Number: None

PATIENT
  Age: 48 Year
  Sex: Female
  Weight: 117 kg

DRUGS (16)
  1. NALTREXONE HYDROCHLORIDE [Suspect]
     Active Substance: NALTREXONE HYDROCHLORIDE
     Indication: Dependence
     Dosage: OTHER QUANTITY : 1 TABLET(S);?FREQUENCY : DAILY;?
     Route: 048
     Dates: start: 20240522, end: 20240612
  2. BUPROPION [Concomitant]
     Active Substance: BUPROPION
  3. CARVEDILOL [Concomitant]
     Active Substance: CARVEDILOL
  4. FAMOTIDINE [Concomitant]
     Active Substance: FAMOTIDINE
  5. , Fluoxetine [Concomitant]
  6. JARDIANCE [Concomitant]
     Active Substance: EMPAGLIFLOZIN
  7. OMEPRAZOLE [Concomitant]
     Active Substance: DONEPEZIL HYDROCHLORIDE\OMEPRAZOLE\OMEPRAZOLE MAGNESIUM
  8. Tymlos, [Concomitant]
  9. XARELTO [Concomitant]
     Active Substance: RIVAROXABAN
  10. ENTRESTO [Concomitant]
  11. PROGESTERONE [Concomitant]
  12. Zyrtec [Concomitant]
  13. Vitamin D [Concomitant]
  14. CALCIUM CITRATE [Concomitant]
     Active Substance: CALCIUM CITRATE
  15. TYLENOL [Concomitant]
  16. COLACE [Concomitant]

REACTIONS (3)
  - Depression [None]
  - Suicidal ideation [None]
  - Therapy cessation [None]

NARRATIVE: CASE EVENT DATE: 20240611
